FAERS Safety Report 10570672 (Version 1)
Quarter: 2014Q4

REPORT INFORMATION
  Report Type: Spontaneous
  Country: US (occurrence: None)
  Receive Date: 20141106
  Receipt Date: 20141106
  Transmission Date: 20150529
  Serious: Yes (Other)
  Sender: FDA-Public Use
  Company Number: None

PATIENT
  Age: 79 Year
  Sex: Male
  Weight: 81.65 kg

DRUGS (1)
  1. XTANDI [Suspect]
     Active Substance: ENZALUTAMIDE
     Indication: PROSTATE CANCER
     Dosage: STRENGTH: 160MG, DOSE FORM: ORAL, ROUTE: ORAL 047, FREQUENCY: QD
     Route: 048
     Dates: start: 201409, end: 201411

REACTIONS (1)
  - Prostatic specific antigen increased [None]

NARRATIVE: CASE EVENT DATE: 20141105
